FAERS Safety Report 6590486-9 (Version None)
Quarter: 2010Q1

REPORT INFORMATION
  Report Type: 
  Country: None (occurrence: None)
  Receive Date: 20100219
  Receipt Date: 20100210
  Transmission Date: 20100710
  Serious: Yes (Other)
  Sender: FDA-Public Use
  Company Number: JP-ROCHE-685824

PATIENT
  Age: 22 Year
  Sex: Male

DRUGS (2)
  1. CELLCEPT [Suspect]
     Route: 048
  2. TACROLIMUS HYDRATE [Concomitant]

REACTIONS (1)
  - HAEMOLYTIC URAEMIC SYNDROME [None]
